FAERS Safety Report 4494975-2 (Version None)
Quarter: 2004Q4

REPORT INFORMATION
  Report Type: 
  Country: None (occurrence: None)
  Receive Date: 20041105
  Receipt Date: 20041105
  Transmission Date: 20050328
  Serious: Yes (Life-Threatening, Hospitalization, Disabling)
  Sender: FDA-Public Use
  Company Number: None

PATIENT
  Age: 56 Year
  Sex: Female
  Weight: 64.8644 kg

DRUGS (2)
  1. VIOXX [Suspect]
     Dosage: 25MG       DAY
     Dates: start: 19990617, end: 20040930
  2. VIOXX [Suspect]
     Dosage: 50MG    DAY

REACTIONS (2)
  - CEREBROVASCULAR ACCIDENT [None]
  - MYOCARDIAL INFARCTION [None]
